FAERS Safety Report 9827019 (Version 1)
Quarter: 2014Q1

REPORT INFORMATION
  Report Type: Spontaneous
  Country: US (occurrence: US)
  Receive Date: 20140117
  Receipt Date: 20140117
  Transmission Date: 20141002
  Serious: No
  Sender: FDA-Public Use
  Company Number: US-GLAXOSMITHKLINE-A1026767A

PATIENT
  Age: 64 Year
  Sex: Male

DRUGS (6)
  1. PROMACTA [Suspect]
     Indication: IMMUNE THROMBOCYTOPENIC PURPURA
     Dosage: 50MG PER DAY
     Route: 048
     Dates: start: 20110603
  2. LANTUS [Concomitant]
  3. RANITIDINE [Concomitant]
  4. CARVEDILOL [Concomitant]
  5. LASIX [Concomitant]
  6. AMLODIPINE [Concomitant]

REACTIONS (1)
  - Rash vesicular [Unknown]
